FAERS Safety Report 14262480 (Version 1)
Quarter: 2017Q4

REPORT INFORMATION
  Report Type: Report from Study
  Country: US (occurrence: US)
  Receive Date: 20171208
  Receipt Date: 20171208
  Transmission Date: 20180321
  Serious: No
  Sender: FDA-Public Use
  Company Number: US-KYOWAKIRIN-2017BKK002476

PATIENT

DRUGS (1)
  1. GRANISETRON [Suspect]
     Active Substance: GRANISETRON
     Indication: OVARIAN CANCER
     Dosage: 1 DF, 24 HOURS PRIOR TO CHEMO AND LEAVE IN PLACE FOR 7 DAYS
     Route: 062
     Dates: start: 20170510, end: 20170906

REACTIONS (4)
  - Dermatitis contact [Unknown]
  - Erythema [Unknown]
  - Pruritus [Unknown]
  - Nodule [Unknown]

NARRATIVE: CASE EVENT DATE: 2017
